FAERS Safety Report 17003320 (Version 1)
Quarter: 2019Q4

REPORT INFORMATION
  Report Type: Spontaneous
  Country: US (occurrence: US)
  Receive Date: 20191107
  Receipt Date: 20191107
  Transmission Date: 20200122
  Serious: No
  Sender: FDA-Public Use
  Company Number: US-ALLERGAN-1926409US

PATIENT
  Age: 65 Year
  Sex: Female
  Weight: 68.04 kg

DRUGS (4)
  1. TIMOLOL UNK [Suspect]
     Active Substance: TIMOLOL
     Indication: GLAUCOMA
     Dosage: 2 GTT, BID
     Route: 047
     Dates: start: 2017
  2. BRIMONIDINE [Suspect]
     Active Substance: BRIMONIDINE TARTRATE
     Indication: GLAUCOMA
  3. LATANOPROST. [Suspect]
     Active Substance: LATANOPROST
     Indication: GLAUCOMA
     Dosage: 1 GTT, QHS
     Route: 047
     Dates: start: 2017
  4. BRIMONIDINE [Suspect]
     Active Substance: BRIMONIDINE TARTRATE
     Indication: INTRAOCULAR PRESSURE INCREASED
     Dosage: 2 GTT, BID
     Route: 047

REACTIONS (9)
  - Product dose omission [Unknown]
  - Eye disorder [Unknown]
  - Product use issue [Unknown]
  - Accidental exposure to product [Unknown]
  - Ocular hyperaemia [Unknown]
  - Dry eye [Unknown]
  - Incorrect dose administered [Unknown]
  - Eye irritation [Unknown]
  - Product container issue [Unknown]

NARRATIVE: CASE EVENT DATE: 201905
